FAERS Safety Report 25611205 (Version 1)
Quarter: 2025Q3

REPORT INFORMATION
  Report Type: Spontaneous
  Country: US (occurrence: None)
  Receive Date: 20250725
  Receipt Date: 20250725
  Transmission Date: 20251021
  Serious: Yes (Death)
  Sender: FDA-CTU
  Company Number: None

PATIENT
  Age: 84 Year
  Sex: Female

DRUGS (11)
  1. LOKELMA [Suspect]
     Active Substance: SODIUM ZIRCONIUM CYCLOSILICATE
     Indication: Hyperkalaemia
     Dosage: FREQUENCY : DAILY;?
     Route: 048
     Dates: start: 20250214
  2. LEVOTHYROXINE [Concomitant]
     Active Substance: LEVOTHYROXINE
  3. ACETAMINOPHEN\OXYCODONE HYDROCHLORIDE [Concomitant]
     Active Substance: ACETAMINOPHEN\OXYCODONE HYDROCHLORIDE
  4. FERROUS SULFATE 325MG (5GR) TABS [Concomitant]
  5. METOPROLOL TARTRATE 50MG TABLETS [Concomitant]
  6. NIFEDIPINE [Concomitant]
     Active Substance: NIFEDIPINE
  7. LOSARTAN [Concomitant]
     Active Substance: LOSARTAN
  8. GUAIFENESIN 600MG ER TABLETS [Concomitant]
  9. CYCLOBENZAPRINE 5MG TABLETS [Concomitant]
  10. HYDROCORTISONE 1 % CREAM 28GM [Concomitant]
  11. CEPHALEXIN 500MG TABLETS [Concomitant]

REACTIONS (1)
  - Death [None]
